FAERS Safety Report 10130305 (Version 1)
Quarter: 2014Q2

REPORT INFORMATION
  Report Type: Spontaneous
  Country: US (occurrence: None)
  Receive Date: 20140425
  Receipt Date: 20140425
  Transmission Date: 20141212
  Serious: Yes (Life-Threatening)
  Sender: FDA-Public Use
  Company Number: None

PATIENT
  Age: 38 Year
  Sex: Female

DRUGS (1)
  1. TYSABRI [Suspect]
     Indication: MULTIPLE SCLEROSIS
     Dosage: 1 VIAL, EVERY 28 DAYS, INTO A VEIN
     Dates: start: 20140131

REACTIONS (7)
  - Pruritus [None]
  - Urticaria [None]
  - Drug ineffective [None]
  - Swollen tongue [None]
  - Plicated tongue [None]
  - Hypersensitivity [None]
  - Anaphylactic reaction [None]
